FAERS Safety Report 5356327-2 (Version None)
Quarter: 2007Q2

REPORT INFORMATION
  Report Type: 
  Country: None (occurrence: None)
  Receive Date: 20070613
  Receipt Date: 20070601
  Transmission Date: 20071010
  Serious: Yes (Other)
  Sender: FDA-Public Use
  Company Number: US-PFIZER INC-2007046049

PATIENT
  Sex: Female
  Weight: 90.9 kg

DRUGS (7)
  1. CHANTIX [Suspect]
     Indication: EX-SMOKER
     Dates: start: 20070528, end: 20070531
  2. ISOSORBIDE DINITRATE [Concomitant]
  3. LIPITOR [Concomitant]
  4. PLAVIX [Concomitant]
  5. TOPROL-XL [Concomitant]
  6. LAMICTAL [Concomitant]
  7. TRAZODONE HCL [Concomitant]

REACTIONS (3)
  - EYE SWELLING [None]
  - RASH [None]
  - SWELLING FACE [None]
